APPROVED DRUG PRODUCT: SUNITINIB MALATE
Active Ingredient: SUNITINIB MALATE
Strength: EQ 25MG BASE
Dosage Form/Route: CAPSULE;ORAL
Application: A215843 | Product #002 | TE Code: AB
Applicant: DR REDDYS LABORATORIES LTD
Approved: Apr 11, 2022 | RLD: No | RS: No | Type: RX